FAERS Safety Report 5470744-1 (Version None)
Quarter: 2007Q3

REPORT INFORMATION
  Report Type: 
  Country: None (occurrence: None)
  Receive Date: 20070820
  Receipt Date: 20070623
  Transmission Date: 20080115
  Serious: No
  Sender: FDA-Public Use
  Company Number: WAES 0706USA04647

PATIENT
  Age: 72 Year
  Sex: Female
  Weight: 72.1219 kg

DRUGS (2)
  1. JANUVIA [Suspect]
     Indication: DIABETES MELLITUS
     Dosage: 100 MG/DAILY/PO
     Route: 048
     Dates: start: 20070417, end: 20070503
  2. [THERAPY UNSPECIFIED] [Concomitant]

REACTIONS (2)
  - COUGH [None]
  - RASH [None]
